FAERS Safety Report 4825746-2 (Version None)
Quarter: 2005Q4

REPORT INFORMATION
  Report Type: 
  Country: None (occurrence: None)
  Receive Date: 20051111
  Receipt Date: 20051107
  Transmission Date: 20060501
  Serious: Yes (Hospitalization)
  Sender: FDA-Public Use
  Company Number: FR-BRACCO-BRO-009380

PATIENT
  Sex: Female

DRUGS (6)
  1. IOPAMIRON [Suspect]
     Indication: BACK PAIN
     Route: 037
     Dates: start: 20050824, end: 20050824
  2. IOPAMIRON [Suspect]
     Route: 037
     Dates: start: 20050824, end: 20050824
  3. EFFERALGAN CODEINE [Concomitant]
     Route: 050
  4. ATARAX                             /00058402/ [Interacting]
     Route: 050
     Dates: start: 20050822, end: 20050824
  5. SOLU-MEDROL [Interacting]
     Route: 050
     Dates: start: 20050824, end: 20050824
  6. VOLTAREN                           /00372301/ [Concomitant]
     Route: 050

REACTIONS (5)
  - BLOOD LACTIC ACID INCREASED [None]
  - BRAIN OEDEMA [None]
  - GRAND MAL CONVULSION [None]
  - HEADACHE [None]
  - IODINE ALLERGY [None]
